FAERS Safety Report 8113986-9 (Version None)
Quarter: 2012Q1

REPORT INFORMATION
  Report Type: 
  Country: None (occurrence: None)
  Receive Date: 20120203
  Receipt Date: 20120130
  Transmission Date: 20120608
  Serious: Yes (Hospitalization)
  Sender: FDA-Public Use
  Company Number: TR-MERCK-1202USA00320

PATIENT
  Age: 69 Year
  Sex: Male

DRUGS (2)
  1. BORTEZOMIB [Suspect]
     Indication: MULTIPLE MYELOMA
     Dosage: ON DAYS 1, 4, 8 AND 11
     Route: 065
     Dates: start: 20100101
  2. DECADRON [Suspect]
     Indication: MULTIPLE MYELOMA
     Dosage: THE 4TH COURSE ON 09-AUG-2010
     Route: 048
     Dates: start: 20100101

REACTIONS (1)
  - HYPONATRAEMIA [None]
